FAERS Safety Report 11687364 (Version 1)
Quarter: 2015Q4

REPORT INFORMATION
  Report Type: Spontaneous
  Country: DE (occurrence: DE)
  Receive Date: 20151030
  Receipt Date: 20151030
  Transmission Date: 20160304
  Serious: Yes (Other)
  Sender: FDA-Public Use
  Company Number: DE-PFIZER INC-2015361079

PATIENT
  Age: 36 Year
  Sex: Female
  Weight: 61 kg

DRUGS (3)
  1. SERTRALINE HCL [Suspect]
     Active Substance: SERTRALINE HYDROCHLORIDE
     Indication: DEPRESSION
     Dosage: VARYING BETWEEN 50 -100MG/DAY; 0. - 39.3. GESTATIONAL WEEK
     Route: 048
     Dates: start: 20140919, end: 20150622
  2. VACCINE, INFLUENZA [Concomitant]
     Active Substance: INFLUENZA VIRUS VACCINE
     Indication: IMMUNISATION
     Dosage: UNK
     Route: 048
  3. FOLSAN [Concomitant]
     Active Substance: FOLIC ACID
     Indication: PROPHYLAXIS OF NEURAL TUBE DEFECT
     Dosage: UNK, 0. - 39.3. GESTATIONAL WEEK
     Route: 048
     Dates: start: 20140919, end: 20150622

REACTIONS (1)
  - Premature rupture of membranes [Unknown]

NARRATIVE: CASE EVENT DATE: 201506
